FAERS Safety Report 23955144 (Version 1)
Quarter: 2024Q2

REPORT INFORMATION
  Report Type: Spontaneous
  Country: FR (occurrence: FR)
  Receive Date: 20240610
  Receipt Date: 20240610
  Transmission Date: 20240716
  Serious: Yes (Other)
  Sender: FDA-Public Use
  Company Number: FR-KRKA-FR2022K13199LIT

PATIENT
  Age: 29 Year
  Sex: Female

DRUGS (15)
  1. DULOXETINE [Suspect]
     Active Substance: DULOXETINE
     Indication: Trigeminal neuropathy
     Dosage: UNK(SUFFICIENT DOSES OVER SEVERAL MONTHS)
     Route: 065
  2. DULOXETINE [Suspect]
     Active Substance: DULOXETINE
     Indication: Anxiolytic therapy
  3. VENLAFAXINE [Suspect]
     Active Substance: VENLAFAXINE HYDROCHLORIDE
     Indication: Anxiolytic therapy
     Dosage: UNK
     Route: 065
  4. VENLAFAXINE HYDROCHLORIDE [Suspect]
     Active Substance: VENLAFAXINE HYDROCHLORIDE
     Indication: Trigeminal neuropathy
     Dosage: SUFFICIENT DOSES OVER SEVERAL MONTHS
     Route: 065
  5. AMITRIPTYLINE [Suspect]
     Active Substance: AMITRIPTYLINE
     Indication: Trigeminal neuropathy
     Dosage: SUFFICIENT DOSES OVER SEVERAL MONTHS
     Route: 065
  6. AMITRIPTYLINE [Suspect]
     Active Substance: AMITRIPTYLINE
     Indication: Neuralgia
  7. BOTOX [Suspect]
     Active Substance: ONABOTULINUMTOXINA
     Indication: Trigeminal neuropathy
     Dosage: 25 INTERNATIONAL UNIT(SMALL INJECTION VOLUME (0.5 ML))
  8. BOTOX [Suspect]
     Active Substance: ONABOTULINUMTOXINA
     Indication: Neuralgia
     Dosage: 25 INTERNATIONAL UNIT
     Route: 023
  9. CARBAMAZEPINE [Suspect]
     Active Substance: CARBAMAZEPINE
     Indication: Trigeminal neuropathy
     Dosage: SUFFICIENT DOSES OVER SEVERAL MONTHS
     Route: 065
  10. CARBAMAZEPINE [Suspect]
     Active Substance: CARBAMAZEPINE
     Indication: Neuralgia
  11. CLONAZEPAM [Suspect]
     Active Substance: CLONAZEPAM
     Indication: Trigeminal neuropathy
     Dosage: UNK UNK, 3 TIMES A DAY(6 DROPS)
     Route: 065
  12. CLONAZEPAM [Suspect]
     Active Substance: CLONAZEPAM
     Indication: Neuralgia
  13. PREGABALIN [Suspect]
     Active Substance: PREGABALIN
     Indication: Trigeminal neuropathy
     Dosage: 150 MILLIGRAM, ONCE A DAY
     Route: 065
  14. PREGABALIN [Suspect]
     Active Substance: PREGABALIN
     Indication: Neuralgia
  15. ROPIVACAINE [Suspect]
     Active Substance: ROPIVACAINE
     Indication: Nerve block
     Dosage: 7.5 MILLIGRAM PER MILLILITRE
     Route: 065

REACTIONS (9)
  - Amnesia [Unknown]
  - Disturbance in attention [Unknown]
  - Fatigue [Unknown]
  - Weight increased [Unknown]
  - Impaired quality of life [Unknown]
  - Drug ineffective [Unknown]
  - Off label use [Unknown]
  - Treatment failure [Unknown]
  - Maternal exposure during pregnancy [Unknown]
